FAERS Safety Report 6076502-1 (Version None)
Quarter: 2009Q1

REPORT INFORMATION
  Report Type: 
  Country: None (occurrence: None)
  Receive Date: 20090209
  Receipt Date: 20090129
  Transmission Date: 20090719
  Serious: Yes (Death)
  Sender: FDA-Public Use
  Company Number: GXKR2008CH11155

PATIENT
  Age: 27 Year
  Sex: Male

DRUGS (7)
  1. CITALOPRAM HYDROBROMIDE [Suspect]
     Indication: DEPRESSION
     Dosage: 20 MG, QD, ORAL; 40 MG, QD, ORAL
     Route: 048
     Dates: start: 20070601
  2. ZYPREXA [Suspect]
     Indication: SCHIZOPHRENIA
     Dosage: 20 MG, QD, ORAL; 30 MG, QD, ORAL; 40 MG, QD
     Route: 048
     Dates: start: 20030301
  3. ZYPREXA [Suspect]
     Indication: SCHIZOPHRENIA
     Dosage: 20 MG, QD, ORAL; 30 MG, QD, ORAL; 40 MG, QD
     Route: 048
     Dates: start: 20040401
  4. ZYPREXA [Suspect]
     Indication: SCHIZOPHRENIA
     Dosage: 20 MG, QD, ORAL; 30 MG, QD, ORAL; 40 MG, QD
     Route: 048
     Dates: start: 20050101
  5. LORASIFAR (LORAZEPAM), 3 MG [Concomitant]
  6. ZOLPIDEM TARTRATE [Concomitant]
  7. NICOTINE [Concomitant]

REACTIONS (5)
  - DISCOMFORT [None]
  - DYSPEPSIA [None]
  - ELECTROLYTE IMBALANCE [None]
  - HEAT STROKE [None]
  - PANCREATITIS HAEMORRHAGIC [None]
